FAERS Safety Report 17975554 (Version 1)
Quarter: 2020Q3

REPORT INFORMATION
  Report Type: Spontaneous
  Country: US (occurrence: US)
  Receive Date: 20200702
  Receipt Date: 20200702
  Transmission Date: 20201103
  Serious: No
  Sender: FDA-Public Use
  Company Number: US-B.I. PHARMACEUTICALS,INC./RIDGEFIELD-2020-US-032805

PATIENT
  Sex: Male

DRUGS (1)
  1. OFEV [Suspect]
     Active Substance: NINTEDANIB
     Indication: LUNG DISORDER
     Dosage: UNKNOWN
     Route: 065

REACTIONS (1)
  - Urine amphetamine positive [Recovered/Resolved]

NARRATIVE: CASE EVENT DATE: 20200629
